FAERS Safety Report 10029791 (Version 1)
Quarter: 2014Q1

REPORT INFORMATION
  Report Type: Spontaneous
  Country: US (occurrence: None)
  Receive Date: 20140319
  Receipt Date: 20140319
  Transmission Date: 20141002
  Serious: Yes (Other)
  Sender: FDA-Public Use
  Company Number: 2239892

PATIENT
  Age: 15 Year
  Sex: Female

DRUGS (10)
  1. FENTANYL CITRATE [Suspect]
     Indication: INDUCTION OF ANAESTHESIA
  2. PROPOFOL [Suspect]
     Indication: INDUCTION OF ANAESTHESIA
  3. SEVOFLURANE [Suspect]
     Indication: MAINTENANCE OF ANAESTHESIA
  4. MIDAZOLAM [Concomitant]
  5. ACETAMINOPHEN [Concomitant]
  6. KETOROLAC [Concomitant]
  7. BUPIVACAINE [Concomitant]
  8. SOLUMEDROL [Concomitant]
  9. ONDANSETRON [Concomitant]
  10. DECADRON [Concomitant]

REACTIONS (5)
  - Post procedural complication [None]
  - Conversion disorder [None]
  - Unresponsive to stimuli [None]
  - Agitation [None]
  - Delayed recovery from anaesthesia [None]
